FAERS Safety Report 19757533 (Version 2)
Quarter: 2021Q3

REPORT INFORMATION
  Report Type: Report from Study
  Country: GB (occurrence: GB)
  Receive Date: 20210828
  Receipt Date: 20210907
  Transmission Date: 20211014
  Serious: Yes (Other)
  Sender: FDA-Public Use
  Company Number: GB-ACCORD-236607

PATIENT
  Age: 52 Year
  Sex: Female
  Weight: 63.5 kg

DRUGS (10)
  1. GRANISETRON [Concomitant]
     Active Substance: GRANISETRON
     Route: 065
     Dates: start: 20210303, end: 20210303
  2. PARACETAMOL [Concomitant]
     Active Substance: ACETAMINOPHEN
     Route: 065
  3. CHLORPHENAMINE/CHLORPHENAMINE MALEATE/CHLORPHENAMINE RESINATE/CHLORPHENAMINE TANNATE [Concomitant]
     Active Substance: CHLORPHENIRAMINE
     Route: 065
     Dates: start: 20210303, end: 20210303
  4. DEXAMETHASONE. [Concomitant]
     Active Substance: DEXAMETHASONE
     Route: 065
     Dates: start: 20210331, end: 20210331
  5. ATEZOLIZUMAB. [Suspect]
     Active Substance: ATEZOLIZUMAB
     Indication: SMALL CELL LUNG CANCER EXTENSIVE STAGE
     Route: 042
     Dates: start: 20210303
  6. SALBUTAMOL [Concomitant]
     Active Substance: ALBUTEROL
     Route: 065
  7. CARBOPLATIN. [Suspect]
     Active Substance: CARBOPLATIN
     Indication: SMALL CELL LUNG CANCER EXTENSIVE STAGE
     Route: 065
     Dates: start: 20210303
  8. ETOPOSIDE. [Suspect]
     Active Substance: ETOPOSIDE
     Indication: PRODUCT USED FOR UNKNOWN INDICATION
     Route: 048
     Dates: start: 20210401
  9. RANITIDINE. [Concomitant]
     Active Substance: RANITIDINE
     Route: 065
     Dates: start: 20210331, end: 20210409
  10. CETIRIZINE [Concomitant]
     Active Substance: CETIRIZINE HYDROCHLORIDE
     Route: 065
     Dates: start: 20210304, end: 20210306

REACTIONS (6)
  - Back pain [Recovered/Resolved]
  - Arthralgia [Recovered/Resolved]
  - Fatigue [Recovered/Resolved]
  - Skin reaction [Recovered/Resolved]
  - Lower respiratory tract infection [Recovered/Resolved]
  - Nausea [Recovered/Resolved]

NARRATIVE: CASE EVENT DATE: 20210303
